FAERS Safety Report 15281554 (Version 1)
Quarter: 2018Q3

REPORT INFORMATION
  Report Type: Spontaneous
  Country: US (occurrence: US)
  Receive Date: 20180731
  Receipt Date: 20180731
  Transmission Date: 20181010
  Serious: No
  Sender: FDA-Public Use
  Company Number: None

PATIENT
  Age: 44 Year
  Sex: Male
  Weight: 72.45 kg

DRUGS (2)
  1. GLEEVEC [Concomitant]
     Active Substance: IMATINIB MESYLATE
     Dates: start: 20170104, end: 20180731
  2. GLEEVEC [Suspect]
     Active Substance: IMATINIB MESYLATE
     Indication: CHRONIC MYELOID LEUKAEMIA
     Route: 048
     Dates: start: 20170105, end: 20180731

REACTIONS (1)
  - Disease progression [None]

NARRATIVE: CASE EVENT DATE: 20180731
